FAERS Safety Report 8786792 (Version 1)
Quarter: 2012Q4

REPORT INFORMATION
  Report Type: Report from Study
  Country: US (occurrence: US)
  Receive Date: 20120914
  Receipt Date: 20120914
  Transmission Date: 20130627
  Serious: No
  Sender: FDA-Public Use
  Company Number: US-VERTEX PHARMACEUTICAL INC.-AE-2012-011197

PATIENT
  Sex: Male
  Weight: 75.8 kg

DRUGS (8)
  1. INCIVEK [Suspect]
     Indication: HEPATITIS C
     Route: 048
     Dates: start: 201205
  2. PEGASYS [Concomitant]
     Indication: HEPATITIS C
     Route: 058
     Dates: start: 201205
  3. RIBASPHERE [Concomitant]
     Indication: HEPATITIS C
  4. JANUMET 50 [Concomitant]
  5. FUROSEMIDE [Concomitant]
  6. LANTUS [Concomitant]
  7. OMEPRAZOLE DR [Concomitant]
  8. SPIRONOLACTONE [Concomitant]

REACTIONS (2)
  - Fatigue [Unknown]
  - Urticaria [Unknown]
